FAERS Safety Report 9119645 (Version 5)
Quarter: 2013Q2

REPORT INFORMATION
  Report Type: Spontaneous
  Country: DK (occurrence: DK)
  Receive Date: 20130226
  Receipt Date: 20130503
  Transmission Date: 20140414
  Serious: Yes (Death, Life-Threatening, Other)
  Sender: FDA-Public Use
  Company Number: DK-009507513-1302DNK010165

PATIENT
  Age: 58 Year
  Sex: Male
  Weight: 85 kg

DRUGS (4)
  1. VICTRELIS [Suspect]
     Indication: HEPATITIS C
     Dosage: DOSE: 200 MG
     Route: 048
     Dates: start: 20121005, end: 201302
  2. REBETOL [Concomitant]
     Indication: HEPATITIS C
     Dosage: 600 MG, BID
     Route: 048
     Dates: start: 20120907
  3. ELTROXIN [Concomitant]
     Indication: HYPOTHYROIDISM
     Dosage: 150 MICROGRAM, ONCE
  4. PEGINTRON [Concomitant]
     Indication: HEPATITIS C
     Dosage: 150 MICROGRAM QW
     Dates: start: 20120907

REACTIONS (12)
  - Pneumonia [Fatal]
  - Bone marrow disorder [Not Recovered/Not Resolved]
  - Renal disorder [Not Recovered/Not Resolved]
  - Fatigue [Not Recovered/Not Resolved]
  - Cough [Not Recovered/Not Resolved]
  - Malaise [Not Recovered/Not Resolved]
  - Haemoptysis [Not Recovered/Not Resolved]
  - Dyspnoea [Not Recovered/Not Resolved]
  - Loss of consciousness [Not Recovered/Not Resolved]
  - Metabolic disorder [Recovered/Resolved]
  - Pleural effusion [Not Recovered/Not Resolved]
  - Lymphadenopathy [Not Recovered/Not Resolved]
